FAERS Safety Report 7474562-4 (Version None)
Quarter: 2011Q2

REPORT INFORMATION
  Report Type: 
  Country: None (occurrence: None)
  Receive Date: 20110511
  Receipt Date: 20110511
  Transmission Date: 20111010
  Serious: Yes (Death)
  Sender: FDA-Public Use
  Company Number: None

PATIENT
  Age: 16 Year
  Sex: Female

DRUGS (1)
  1. MIFEPREX [Suspect]

REACTIONS (5)
  - TOXIC SHOCK SYNDROME [None]
  - CLOSTRIDIAL INFECTION [None]
  - METABOLIC ACIDOSIS [None]
  - POST ABORTION INFECTION [None]
  - BACTERIAL SEPSIS [None]
